FAERS Safety Report 19424458 (Version 1)
Quarter: 2021Q2

REPORT INFORMATION
  Report Type: Spontaneous
  Country: US (occurrence: US)
  Receive Date: 20210616
  Receipt Date: 20210616
  Transmission Date: 20210717
  Serious: No
  Sender: FDA-Public Use
  Company Number: US-SK LIFE SCIENCE, INC-SKPVG-2021-000386

PATIENT

DRUGS (3)
  1. XCOPRI [Suspect]
     Active Substance: CENOBAMATE
     Dosage: ALTERNATES EVERY OTHER DAY BETWEEN 300 MG AND 350 MG AVERAGING 325 MG PER DAY
     Route: 048
  2. XCOPRI [Suspect]
     Active Substance: CENOBAMATE
     Indication: EPILEPSY
     Dosage: 400 MILLIGRAM
     Route: 048
  3. XCOPRI [Suspect]
     Active Substance: CENOBAMATE
     Dosage: 300 MILLIGRAM
     Route: 048

REACTIONS (5)
  - Seizure [Unknown]
  - Drug titration error [Not Recovered/Not Resolved]
  - Memory impairment [Recovering/Resolving]
  - Fall [Unknown]
  - Balance disorder [Recovered/Resolved]
